FAERS Safety Report 18041876 (Version 2)
Quarter: 2020Q3

REPORT INFORMATION
  Report Type: Spontaneous
  Country: FR (occurrence: FR)
  Receive Date: 20200720
  Receipt Date: 20200804
  Transmission Date: 20201103
  Serious: Yes (Hospitalization, Other)
  Sender: FDA-Public Use
  Company Number: FR-ACCORD-191280

PATIENT
  Age: 57 Year
  Sex: Female

DRUGS (2)
  1. CHLOROQUINE. [Interacting]
     Active Substance: CHLOROQUINE
     Indication: COVID-19 PROPHYLAXIS
  2. ESCITALOPRAM [Suspect]
     Active Substance: ESCITALOPRAM OXALATE
     Indication: ANXIETY
     Dosage: FOR SEVERAL YEARS

REACTIONS (2)
  - Psychotic disorder [Recovered/Resolved]
  - Drug interaction [Unknown]
